FAERS Safety Report 4996582-1 (Version None)
Quarter: 2006Q2

REPORT INFORMATION
  Report Type: 
  Country: None (occurrence: None)
  Receive Date: 20060505
  Receipt Date: 20060424
  Transmission Date: 20061013
  Serious: Yes (Hospitalization)
  Sender: FDA-Public Use
  Company Number: CIP06000915

PATIENT
  Age: 80 Year
  Sex: Female

DRUGS (1)
  1. FURADANTINE(NITROFURANTOIN MACROCRYSTALS) CAPULE [Suspect]
     Indication: URINARY TRACT INFECTION
     Dosage: 2 DF DAILY , ORAL
     Route: 048
     Dates: start: 20040101, end: 20060210

REACTIONS (5)
  - ANTIPHOSPHOLIPID ANTIBODIES POSITIVE [None]
  - APTYALISM [None]
  - CYTOLYTIC HEPATITIS [None]
  - PLEURISY [None]
  - SJOGREN'S SYNDROME [None]
